FAERS Safety Report 17462697 (Version 1)
Quarter: 2020Q1

REPORT INFORMATION
  Report Type: Spontaneous
  Country: US (occurrence: US)
  Receive Date: 20200226
  Receipt Date: 20200226
  Transmission Date: 20200409
  Serious: Yes (Life-Threatening, Hospitalization, Disabling)
  Sender: FDA-Public Use
  Company Number: US-TEVA-2020-US-1190233

PATIENT
  Age: 5 Year
  Sex: Male

DRUGS (3)
  1. CYTARABINE. [Suspect]
     Active Substance: CYTARABINE
     Indication: B PRECURSOR TYPE ACUTE LEUKAEMIA
     Route: 065
  2. METHOTREXATE. [Suspect]
     Active Substance: METHOTREXATE
     Indication: B PRECURSOR TYPE ACUTE LEUKAEMIA
     Route: 037
  3. TIOGUANINE [Suspect]
     Active Substance: THIOGUANINE ANHYDROUS
     Indication: B PRECURSOR TYPE ACUTE LEUKAEMIA
     Dosage: HE HAD COMPLETED 14 DAYS OF SCHEDULED TIOGUANINE
     Route: 065

REACTIONS (5)
  - Thrombocytopenia [Not Recovered/Not Resolved]
  - Retinal haemorrhage [Not Recovered/Not Resolved]
  - Blindness [Not Recovered/Not Resolved]
  - Retinal detachment [Not Recovered/Not Resolved]
  - Venoocclusive liver disease [Recovering/Resolving]
